FAERS Safety Report 11556721 (Version 1)
Quarter: 2015Q3

REPORT INFORMATION
  Report Type: Spontaneous
  Country: US (occurrence: US)
  Receive Date: 20150925
  Receipt Date: 20150925
  Transmission Date: 20151125
  Serious: No
  Sender: FDA-Public Use
  Company Number: US-ACTELION PHARMACEUTICALS US, INC.-A-NJ2015-123289

PATIENT
  Age: 61 Year
  Sex: Female

DRUGS (1)
  1. VELETRI [Suspect]
     Active Substance: EPOPROSTENOL
     Indication: PULMONARY HYPERTENSION
     Dosage: 37 NG/KG, PER MIN
     Route: 042
     Dates: start: 20150422

REACTIONS (11)
  - Rash generalised [Unknown]
  - Asthenia [Unknown]
  - Muscular weakness [Unknown]
  - Back pain [Unknown]
  - Pruritus [Unknown]
  - Dyspnoea [Unknown]
  - Sensory disturbance [Unknown]
  - Restless legs syndrome [Unknown]
  - Flushing [Unknown]
  - Headache [Unknown]
  - Rash erythematous [Unknown]

NARRATIVE: CASE EVENT DATE: 201504
